FAERS Safety Report 16174802 (Version 5)
Quarter: 2019Q2

REPORT INFORMATION
  Report Type: Spontaneous
  Country: US (occurrence: US)
  Receive Date: 20190409
  Receipt Date: 20190516
  Transmission Date: 20190711
  Serious: Yes (Hospitalization)
  Sender: FDA-Public Use
  Company Number: US-NEUROCRINE BIOSCIENCES INC.-2019NBI00816

PATIENT
  Sex: Female

DRUGS (1)
  1. INGREZZA [Suspect]
     Active Substance: VALBENAZINE
     Indication: TARDIVE DYSKINESIA
     Route: 048

REACTIONS (10)
  - Disturbance in attention [Unknown]
  - Dizziness [Unknown]
  - Fall [Unknown]
  - Tardive dyskinesia [Unknown]
  - Paranoia [Unknown]
  - Bipolar II disorder [Unknown]
  - Aphasia [Unknown]
  - Delirium [Unknown]
  - Balance disorder [Unknown]
  - Hallucination [Unknown]
